FAERS Safety Report 17555334 (Version 3)
Quarter: 2021Q2

REPORT INFORMATION
  Report Type: Spontaneous
  Country: FR (occurrence: FR)
  Receive Date: 20200318
  Receipt Date: 20210607
  Transmission Date: 20210716
  Serious: Yes (Other)
  Sender: FDA-Public Use
  Company Number: FR-SA-2020SA063767

PATIENT
  Age: 42 Year
  Sex: Male

DRUGS (10)
  1. CELIPROLOL [Concomitant]
     Active Substance: CELIPROLOL
     Dosage: 200 MG, 1 MORNING 2 EVENING
  2. OGASTORO [Concomitant]
     Active Substance: LANSOPRAZOLE
  3. ALLOPURINOL. [Concomitant]
     Active Substance: ALLOPURINOL
  4. EUPRESSYL [URAPIDIL HYDROCHLORIDE] [Concomitant]
     Active Substance: URAPIDIL HYDROCHLORIDE
     Dosage: 30 MG, BID
  5. LERCANIDIPINE [Concomitant]
     Active Substance: LERCANIDIPINE
     Dosage: 10 :1
  6. AUBAGIO [Suspect]
     Active Substance: TERIFLUNOMIDE
     Indication: MULTIPLE SCLEROSIS
     Dosage: 1 DF, QD
     Route: 048
     Dates: start: 201504
  7. TAHOR [Concomitant]
     Active Substance: ATORVASTATIN CALCIUM
     Dosage: 10:1 IN THE MORNING
  8. LYRICA [Concomitant]
     Active Substance: PREGABALIN
     Dosage: 200 MG, BID
  9. EXFORGE [Concomitant]
     Active Substance: AMLODIPINE BESYLATE\VALSARTAN
     Dosage: 0/160 :1
  10. INORIAL [Concomitant]
     Active Substance: BILASTINE

REACTIONS (20)
  - Hypokalaemia [Not Recovered/Not Resolved]
  - Blood creatinine increased [Not Recovered/Not Resolved]
  - Blood pressure increased [Not Recovered/Not Resolved]
  - Kidney fibrosis [Not Recovered/Not Resolved]
  - Metabolic alkalosis [Not Recovered/Not Resolved]
  - Blood uric acid increased [Not Recovered/Not Resolved]
  - Glucose tolerance impaired [Not Recovered/Not Resolved]
  - Skin discolouration [Not Recovered/Not Resolved]
  - Appendicectomy [Not Recovered/Not Resolved]
  - Renal tubular atrophy [Not Recovered/Not Resolved]
  - Renal failure [Not Recovered/Not Resolved]
  - Haematuria [Not Recovered/Not Resolved]
  - Infection [Not Recovered/Not Resolved]
  - Meniscus removal [Not Recovered/Not Resolved]
  - Oedema [Not Recovered/Not Resolved]
  - Blood triglycerides increased [Not Recovered/Not Resolved]
  - Multiple sclerosis relapse [Not Recovered/Not Resolved]
  - Proteinuria [Not Recovered/Not Resolved]
  - Leukocyturia [Not Recovered/Not Resolved]
  - General physical health deterioration [Not Recovered/Not Resolved]

NARRATIVE: CASE EVENT DATE: 2016
